FAERS Safety Report 12474324 (Version 1)
Quarter: 2016Q2

REPORT INFORMATION
  Report Type: Spontaneous
  Country: US (occurrence: None)
  Receive Date: 20160616
  Receipt Date: 20160616
  Transmission Date: 20160815
  Serious: No
  Sender: FDA-Public Use
  Company Number: None

PATIENT
  Age: 26 Year
  Sex: Female
  Weight: 49.9 kg

DRUGS (3)
  1. WOMEN^S DAILY PILL [Concomitant]
  2. FIBER GUMMIES [Concomitant]
  3. URISTAT [Suspect]
     Active Substance: PHENAZOPYRIDINE HYDROCHLORIDE
     Dosage: 12 TABLET(S) THREE TIMES A DAY TAKEN BY MOUTH
     Route: 048
     Dates: start: 20160613, end: 20160613

REACTIONS (6)
  - Dysuria [None]
  - Renal pain [None]
  - Abdominal discomfort [None]
  - Pyrexia [None]
  - Flank pain [None]
  - Back pain [None]

NARRATIVE: CASE EVENT DATE: 20160614
